FAERS Safety Report 24607698 (Version 1)
Quarter: 2024Q4

REPORT INFORMATION
  Report Type: Spontaneous
  Country: CN (occurrence: CN)
  Receive Date: 20241112
  Receipt Date: 20241112
  Transmission Date: 20250115
  Serious: Yes (Life-Threatening, Other)
  Sender: SPECGX
  Company Number: CN-SPECGX-T202402183

PATIENT
  Age: 71 Year
  Sex: Male
  Weight: 77 kg

DRUGS (1)
  1. TYLOX [Suspect]
     Active Substance: ACETAMINOPHEN\OXYCODONE HYDROCHLORIDE
     Indication: Lung neoplasm malignant
     Dosage: 1 DOSAGE FORM, QD
     Route: 048
     Dates: start: 20240702, end: 20240703

REACTIONS (4)
  - Atrial fibrillation [Recovering/Resolving]
  - Anaphylactic shock [Recovering/Resolving]
  - Loss of consciousness [Recovered/Resolved]
  - Cardioversion [Unknown]

NARRATIVE: CASE EVENT DATE: 20240703
